FAERS Safety Report 7627269-4 (Version None)
Quarter: 2011Q3

REPORT INFORMATION
  Report Type: 
  Country: None (occurrence: None)
  Receive Date: 20110721
  Receipt Date: 20110711
  Transmission Date: 20111222
  Serious: Yes (Hospitalization, Other)
  Sender: FDA-Public Use
  Company Number: PHHY2010CA60427

PATIENT
  Sex: Female

DRUGS (3)
  1. CHEMOTHERAPEUTICS [Concomitant]
  2. SANDOSTATIN LAR [Suspect]
     Dosage: 30 MG, QMO
     Route: 030
  3. SANDOSTATIN LAR [Suspect]
     Indication: PANCREATIC NEUROENDOCRINE TUMOUR
     Dosage: 20 MG, EVERY 4 WEEKS
     Route: 030
     Dates: start: 20100812

REACTIONS (7)
  - BLOOD PRESSURE SYSTOLIC INCREASED [None]
  - NAUSEA [None]
  - DIARRHOEA [None]
  - BLOOD TEST ABNORMAL [None]
  - ANAEMIA [None]
  - WHITE BLOOD CELL COUNT INCREASED [None]
  - NERVOUSNESS [None]
